FAERS Safety Report 16613574 (Version 4)
Quarter: 2019Q4

REPORT INFORMATION
  Report Type: Report from Study
  Country: None (occurrence: TR)
  Receive Date: 20190723
  Receipt Date: 20191030
  Transmission Date: 20200122
  Serious: Yes (Hospitalization, Other)
  Sender: FDA-Public Use
  Company Number: TR-ABBVIE-19K-161-2862188-00

PATIENT
  Age: 63 Year
  Sex: Female
  Weight: 57 kg

DRUGS (5)
  1. DUODOPA [Suspect]
     Active Substance: CARBIDOPA\LEVODOPA
     Indication: PARKINSON^S DISEASE
     Dosage: MORNING DOSE (ML): 8.00 CONTINUOUS DOSE (ML): 4.50 EXTRA DOSE (ML): 2.00
     Route: 050
     Dates: start: 20190618, end: 20190722
  2. DUODOPA [Suspect]
     Active Substance: CARBIDOPA\LEVODOPA
     Dosage: MORNING DOSE (ML): 8.00 CONTINUOUS DOSE (ML): 3.50 EXTRA DOSE(ML): 2.00
     Route: 050
     Dates: start: 20190722
  3. SERALIN [Concomitant]
     Active Substance: SERTRALINE HYDROCHLORIDE
     Indication: SLEEP DISORDER
     Route: 048
     Dates: start: 2018, end: 20190804
  4. PK MERZ [Concomitant]
     Active Substance: AMANTADINE SULFATE
     Indication: PARKINSON^S DISEASE
     Route: 048
     Dates: start: 2017, end: 20190804
  5. MADOPAR [Concomitant]
     Active Substance: BENSERAZIDE HYDROCHLORIDE\LEVODOPA
     Indication: PARKINSON^S DISEASE
     Route: 048
     Dates: start: 2018

REACTIONS (4)
  - Pneumonia [Recovered/Resolved]
  - Disability [Not Recovered/Not Resolved]
  - Dyskinesia [Recovered/Resolved]
  - Loss of consciousness [Recovered/Resolved]

NARRATIVE: CASE EVENT DATE: 20190712
